FAERS Safety Report 24165276 (Version 1)
Quarter: 2024Q3

REPORT INFORMATION
  Report Type: Spontaneous
  Country: GB (occurrence: GB)
  Receive Date: 20240802
  Receipt Date: 20240802
  Transmission Date: 20241016
  Serious: Yes (Other)
  Sender: ALKEM
  Company Number: None

PATIENT
  Age: 39 Year
  Sex: Female
  Weight: 111 kg

DRUGS (1)
  1. IBUPROFEN [Suspect]
     Active Substance: IBUPROFEN
     Indication: Product used for unknown indication
     Dosage: UNK (TABLET)
     Route: 065
     Dates: start: 20240710

REACTIONS (1)
  - Swelling face [Recovered/Resolved]

NARRATIVE: CASE EVENT DATE: 20240710
